FAERS Safety Report 15009445 (Version 1)
Quarter: 2018Q2

REPORT INFORMATION
  Report Type: Spontaneous
  Country: US (occurrence: US)
  Receive Date: 20180614
  Receipt Date: 20180614
  Transmission Date: 20180711
  Serious: Yes (Hospitalization)
  Sender: FDA-Public Use
  Company Number: US-VIFOR (INTERNATIONAL) INC.-VIT-2018-05752

PATIENT
  Age: 55 Year
  Sex: Male

DRUGS (11)
  1. SPIRONOLACTONE. [Concomitant]
     Active Substance: SPIRONOLACTONE
  2. NIFEDIPINE. [Concomitant]
     Active Substance: NIFEDIPINE
  3. MINOXIDIL. [Concomitant]
     Active Substance: MINOXIDIL
  4. PROCRIT 20000 MDV [Concomitant]
  5. THEOPHYLLINE [Concomitant]
     Active Substance: THEOPHYLLINE ANHYDROUS
     Dosage: 1X4
  6. PROCRIT [Concomitant]
     Active Substance: ERYTHROPOIETIN
  7. HYDROCHLOROTHIAZIDE~~LISINOPRIL [Concomitant]
  8. PROFERRIN ES [Concomitant]
  9. METOPROLOL TARTRATE. [Concomitant]
     Active Substance: METOPROLOL TARTRATE
  10. DULERA [Concomitant]
     Active Substance: FORMOTEROL FUMARATE DIHYDRATE\MOMETASONE FUROATE
  11. VELTASSA [Suspect]
     Active Substance: PATIROMER
     Indication: HYPERKALAEMIA
     Route: 048
     Dates: start: 20180412

REACTIONS (1)
  - Hospitalisation [Unknown]

NARRATIVE: CASE EVENT DATE: 20180603
